FAERS Safety Report 14030014 (Version 1)
Quarter: 2017Q3

REPORT INFORMATION
  Report Type: Spontaneous
  Country: US (occurrence: US)
  Receive Date: 20170930
  Receipt Date: 20170930
  Transmission Date: 20171128
  Serious: Yes (Other)
  Sender: FDA-Public Use
  Company Number: US-SA-2017SA150506

PATIENT
  Sex: Male

DRUGS (14)
  1. ALDACTONE [Concomitant]
     Active Substance: SPIRONOLACTONE
  2. KRILL OIL [Concomitant]
     Active Substance: DIETARY SUPPLEMENT
  3. PROZAC [Concomitant]
     Active Substance: FLUOXETINE HYDROCHLORIDE
  4. COQ10 [Concomitant]
     Active Substance: UBIDECARENONE
  5. PROSCAR [Concomitant]
     Active Substance: FINASTERIDE
  6. COREG [Concomitant]
     Active Substance: CARVEDILOL
  7. LASIX [Concomitant]
     Active Substance: FUROSEMIDE
  8. AUBAGIO [Suspect]
     Active Substance: TERIFLUNOMIDE
     Indication: MULTIPLE SCLEROSIS
     Route: 048
     Dates: start: 2015
  9. PLAVIX [Concomitant]
     Active Substance: CLOPIDOGREL BISULFATE
     Route: 065
  10. TRICOR [Concomitant]
     Active Substance: FENOFIBRATE
  11. BETASERON [Concomitant]
     Active Substance: INTERFERON BETA-1B
  12. ASPIRIN. [Concomitant]
     Active Substance: ASPIRIN
  13. FISH OIL [Concomitant]
     Active Substance: FISH OIL
  14. ZANTAC [Concomitant]
     Active Substance: RANITIDINE HYDROCHLORIDE

REACTIONS (7)
  - White blood cell count decreased [Unknown]
  - Gait disturbance [Unknown]
  - Red blood cell count decreased [Unknown]
  - Hypotension [Unknown]
  - Drug ineffective [Unknown]
  - White blood cell count increased [Unknown]
  - Multiple sclerosis [Unknown]
